FAERS Safety Report 4982690-8 (Version None)
Quarter: 2006Q2

REPORT INFORMATION
  Report Type: 
  Country: None (occurrence: None)
  Receive Date: 20060425
  Receipt Date: 20051205
  Transmission Date: 20061013
  Serious: Yes (Hospitalization)
  Sender: FDA-Public Use
  Company Number: US-MERCK-0512USA00829

PATIENT
  Age: 74 Year
  Sex: Female
  Weight: 52 kg

DRUGS (9)
  1. VIOXX [Suspect]
     Indication: OSTEOARTHRITIS
     Route: 048
     Dates: start: 20030519, end: 20030601
  2. VIOXX [Suspect]
     Route: 048
     Dates: start: 20030601, end: 20031118
  3. ALLEGRA [Concomitant]
     Indication: HYPERSENSITIVITY
     Route: 065
  4. AMBIEN [Concomitant]
     Indication: INSOMNIA
     Route: 065
  5. DIOVAN [Concomitant]
     Indication: HYPERTENSION
     Route: 065
  6. TRILEPTAL [Concomitant]
     Indication: CONVULSION
     Route: 065
  7. ASPIRIN [Concomitant]
     Route: 065
  8. FOLIC ACID [Concomitant]
     Indication: HYPOVITAMINOSIS
     Route: 065
  9. LEVAQUIN [Concomitant]
     Indication: BACTERIAL INFECTION
     Route: 065

REACTIONS (4)
  - ATRIAL FIBRILLATION [None]
  - CORONARY ARTERY DISEASE [None]
  - MITRAL VALVE INCOMPETENCE [None]
  - MYOCARDIAL INFARCTION [None]
